FAERS Safety Report 5668530-2 (Version None)
Quarter: 2008Q1

REPORT INFORMATION
  Report Type: 
  Country: None (occurrence: None)
  Receive Date: 20080312
  Receipt Date: 20080307
  Transmission Date: 20080703
  Serious: Yes (Death, Other)
  Sender: FDA-Public Use
  Company Number: 163-21880-08020277

PATIENT
  Age: 78 Year
  Sex: Female

DRUGS (3)
  1. REVLIMID [Suspect]
     Indication: MYELODYSPLASTIC SYNDROME
     Dosage: 2.5 MG, 1 IN 2 D, ORAL, 5 MG, 1 IN 1 D, ORAL, 5 MG, 1 IN 1 D, ORAL
     Route: 048
     Dates: start: 20060324, end: 20060401
  2. REVLIMID [Suspect]
     Indication: MYELODYSPLASTIC SYNDROME
     Dosage: 2.5 MG, 1 IN 2 D, ORAL, 5 MG, 1 IN 1 D, ORAL, 5 MG, 1 IN 1 D, ORAL
     Route: 048
     Dates: start: 20060420, end: 20070701
  3. REVLIMID [Suspect]
     Indication: MYELODYSPLASTIC SYNDROME
     Dosage: 2.5 MG, 1 IN 2 D, ORAL, 5 MG, 1 IN 1 D, ORAL, 5 MG, 1 IN 1 D, ORAL
     Route: 048
     Dates: start: 20070703, end: 20080101

REACTIONS (5)
  - ACUTE LEUKAEMIA [None]
  - DIARRHOEA [None]
  - DISEASE PROGRESSION [None]
  - MYELODYSPLASTIC SYNDROME [None]
  - PURPURA [None]
